FAERS Safety Report 8708029 (Version 2)
Quarter: 2012Q4

REPORT INFORMATION
  Report Type: Spontaneous
  Country: CA (occurrence: None)
  Receive Date: 20120719
  Receipt Date: 20120828
  Transmission Date: 20130627
  Serious: Yes (Other)
  Sender: FDA-Public Use
  Company Number: 2012P1048335

PATIENT
  Age: 83 Year
  Sex: Female
  Weight: 71.67 kg

DRUGS (14)
  1. WARFARIN SODIUM [Suspect]
     Indication: ANTICOAGULANT THERAPY
     Dosage: PO
     Route: 048
     Dates: start: 201205, end: 201206
  2. WARFARIN SODIUM [Suspect]
     Indication: ANTICOAGULANT THERAPY
     Dosage: PO
     Route: 048
     Dates: start: 201205, end: 201206
  3. BACLOFEN [Concomitant]
  4. MIRTAZAPINE [Concomitant]
  5. OXYBUTYNIN [Concomitant]
  6. POTASSIUM [Concomitant]
  7. ADVAIR DISKUS [Concomitant]
  8. HYDROMORPHONE HYDROCHLORIDE [Concomitant]
  9. LACTULOSE [Concomitant]
  10. ALENDRONATE SODIUM [Concomitant]
  11. PRIMIDONE [Concomitant]
  12. DOCUSATE SODIUM [Concomitant]
  13. ACETAMINOPHEN [Concomitant]
  14. EZETIMIBE [Concomitant]

REACTIONS (3)
  - RETROPERITONEAL HAEMORRHAGE [None]
  - INTERNATIONAL NORMALISED RATIO INCREASED [None]
  - DRUG INTERACTION [None]
